FAERS Safety Report 8337917-1 (Version None)
Quarter: 2012Q2

REPORT INFORMATION
  Report Type: 
  Country: None (occurrence: None)
  Receive Date: 20120504
  Receipt Date: 20120425
  Transmission Date: 20120825
  Serious: Yes (Other)
  Sender: FDA-Public Use
  Company Number: GR-ASTRAZENECA-2012SE19614

PATIENT
  Age: 57 Year
  Sex: Male
  Weight: 85 kg

DRUGS (12)
  1. HEPARIN [Suspect]
     Route: 040
  2. SALOSPIR [Suspect]
     Dosage: ONCE DAILY
  3. BRILIQUE [Suspect]
     Indication: ACUTE CORONARY SYNDROME
     Route: 048
     Dates: start: 20120320, end: 20120320
  4. SALOSPIR [Suspect]
     Indication: ACUTE CORONARY SYNDROME
     Dosage: ONCE DAILY
  5. HEPARIN [Suspect]
     Indication: CORONARY ANGIOPLASTY
     Route: 040
  6. METALYSE [Suspect]
     Indication: ACUTE MYOCARDIAL INFARCTION
     Route: 040
  7. HEPARIN [Suspect]
     Indication: ACUTE CORONARY SYNDROME
     Route: 040
  8. ACTIVASE [Concomitant]
     Indication: THROMBOLYSIS
  9. HEPARIN [Suspect]
     Route: 040
  10. AGGRASTAT [Suspect]
     Indication: ACUTE CORONARY SYNDROME
  11. HEPARIN [Suspect]
     Indication: THROMBOLYSIS
     Route: 040
  12. HEPARIN [Suspect]
     Route: 040

REACTIONS (1)
  - CEREBRAL HAEMORRHAGE [None]
